FAERS Safety Report 4553928-6 (Version None)
Quarter: 2005Q1

REPORT INFORMATION
  Report Type: 
  Country: None (occurrence: None)
  Receive Date: 20050118
  Receipt Date: 20041012
  Transmission Date: 20050727
  Serious: Yes (Death)
  Sender: FDA-Public Use
  Company Number: SG-NOVOPROD-239911

PATIENT
  Age: 71 Year
  Sex: Male

DRUGS (1)
  1. NOVOSEVEN [Suspect]
     Indication: ACQUIRED HAEMOPHILIA WITH ANTI FVIII, XI, OR XIII
     Dosage: 60 UG/KG, SINGLE FOR 2 DAYS

REACTIONS (2)
  - CEREBRAL INFARCTION [None]
  - CEREBRAL THROMBOSIS [None]
